FAERS Safety Report 19140997 (Version 1)
Quarter: 2021Q2

REPORT INFORMATION
  Report Type: Spontaneous
  Country: US (occurrence: US)
  Receive Date: 20210415
  Receipt Date: 20210415
  Transmission Date: 20210717
  Serious: Yes (Hospitalization)
  Sender: FDA-Public Use
  Company Number: NVSC2021US080646

PATIENT
  Age: 18 Year
  Sex: Female
  Weight: 109.8 kg

DRUGS (4)
  1. KYMRIAH [Suspect]
     Active Substance: TISAGENLECLEUCEL
     Indication: ACUTE LYMPHOCYTIC LEUKAEMIA
     Dosage: UNK UNK, ONCE/SINGLE
     Route: 065
     Dates: start: 20210315
  2. CEFEPIME [Concomitant]
     Active Substance: CEFEPIME HYDROCHLORIDE
     Indication: NEUTROPENIA
     Dosage: 2000 MG, Q8H
     Route: 042
     Dates: start: 20210322, end: 20210329
  3. CLINDAMYCIN. [Concomitant]
     Active Substance: CLINDAMYCIN
     Indication: NEUTROPENIA
     Dosage: 594 MG, Q8H
     Route: 042
     Dates: start: 20210326, end: 20210331
  4. KEPPRA [Concomitant]
     Active Substance: LEVETIRACETAM
     Indication: SEIZURE PROPHYLAXIS
     Dosage: 750 MG, BID
     Route: 048
     Dates: start: 20210322, end: 20210331

REACTIONS (10)
  - Cytokine release syndrome [Recovered/Resolved]
  - Prothrombin time prolonged [Unknown]
  - Pyrexia [Recovered/Resolved]
  - Hypotension [Recovered/Resolved]
  - Activated partial thromboplastin time prolonged [Unknown]
  - Fibrin D dimer increased [Unknown]
  - Inflammatory marker increased [Recovering/Resolving]
  - Tachycardia [Recovered/Resolved]
  - International normalised ratio increased [Unknown]
  - Blood fibrinogen decreased [Unknown]

NARRATIVE: CASE EVENT DATE: 20210322
